FAERS Safety Report 10412683 (Version 2)
Quarter: 2014Q3

REPORT INFORMATION
  Report Type: Spontaneous
  Country: CA (occurrence: None)
  Receive Date: 20140825
  Receipt Date: 20140905
  Transmission Date: 20150326
  Serious: Yes (Death)
  Sender: FDA-Public Use
  Company Number: CA-016806

PATIENT
  Age: 91 Year
  Sex: Male

DRUGS (4)
  1. FIRMAGON [Suspect]
     Active Substance: DEGARELIX ACETATE
     Indication: PROSTATE CANCER
     Dosage: 240MG 1X SC
     Route: 058
     Dates: start: 20140502
  2. SIMVASTATIN. [Concomitant]
     Active Substance: SIMVASTATIN
  3. ACETYLSALICYLIC ACID ENTRERIC COATED [Concomitant]
  4. SYNTHROID [Concomitant]
     Active Substance: LEVOTHYROXINE SODIUM

REACTIONS (4)
  - Cystitis [None]
  - Urosepsis [None]
  - Death [None]
  - Catheter management [None]

NARRATIVE: CASE EVENT DATE: 20140818
